FAERS Safety Report 10488725 (Version 1)
Quarter: 2014Q4

REPORT INFORMATION
  Report Type: Spontaneous
  Country: US (occurrence: None)
  Receive Date: 20141001
  Receipt Date: 20141001
  Transmission Date: 20150528
  Serious: Yes (Hospitalization)
  Sender: FDA-Public Use
  Company Number: None

PATIENT
  Age: 59 Year
  Sex: Male
  Weight: 80 kg

DRUGS (12)
  1. LACTULOSE. [Concomitant]
     Active Substance: LACTULOSE
  2. OXYCODONE [Concomitant]
     Active Substance: OXYCODONE
  3. FUROSEMIDE. [Concomitant]
     Active Substance: FUROSEMIDE
  4. NADOLOL. [Concomitant]
     Active Substance: NADOLOL
  5. SOFOSBUVIR 400MG GILEAD [Suspect]
     Active Substance: SOFOSBUVIR
     Indication: HEPATITIS C
     Route: 048
     Dates: start: 20140529, end: 20140821
  6. RIFAXAIMIN [Concomitant]
  7. CINCALCET [Concomitant]
  8. SIMEPREVIR 150MG JANSSEN [Suspect]
     Active Substance: SIMEPREVIR
     Indication: HEPATITIS C
     Route: 048
     Dates: start: 20140529, end: 20140821
  9. SPIRONOLACTONE. [Concomitant]
     Active Substance: SPIRONOLACTONE
  10. PROCRIT [Concomitant]
     Active Substance: ERYTHROPOIETIN
  11. POTASSIUM [Concomitant]
     Active Substance: POTASSIUM
  12. TAMSULOSIN [Concomitant]
     Active Substance: TAMSULOSIN

REACTIONS (7)
  - Polyuria [None]
  - Hyperparathyroidism primary [None]
  - Abdominal distension [None]
  - Vitamin D decreased [None]
  - Condition aggravated [None]
  - Splenomegaly [None]
  - Acute kidney injury [None]

NARRATIVE: CASE EVENT DATE: 20140807
